FAERS Safety Report 8099744-2 (Version None)
Quarter: 2012Q1

REPORT INFORMATION
  Report Type: 
  Country: None (occurrence: None)
  Receive Date: 20120129
  Receipt Date: 20110916
  Transmission Date: 20120608
  Serious: No
  Sender: FDA-Public Use
  Company Number: US-ABBOTT-11P-163-0855544-00

PATIENT
  Age: 38 Year
  Sex: Female

DRUGS (6)
  1. ZYRTEC [Concomitant]
     Indication: SEASONAL ALLERGY
  2. DEPLIN [Concomitant]
     Indication: DEPRESSION
  3. HUMIRA [Suspect]
     Indication: PSORIATIC ARTHROPATHY
     Dates: start: 20110916
  4. BUPROPION HCL [Concomitant]
     Indication: DEPRESSION
  5. TRAZODONE HCL [Concomitant]
     Indication: INSOMNIA
  6. BOTOX [Concomitant]
     Indication: SKIN DISORDER

REACTIONS (1)
  - INJECTION SITE PAIN [None]
